FAERS Safety Report 9468050 (Version 1)
Quarter: 2013Q3

REPORT INFORMATION
  Report Type: Spontaneous
  Country: US (occurrence: US)
  Receive Date: 20130821
  Receipt Date: 20130821
  Transmission Date: 20140515
  Serious: No
  Sender: FDA-Public Use
  Company Number: US-TEVA-427438USA

PATIENT
  Age: 89 Year
  Sex: Female
  Weight: 58.57 kg

DRUGS (6)
  1. AZILECT [Suspect]
     Indication: PARKINSON^S DISEASE
     Route: 048
     Dates: start: 20130815, end: 20130817
  2. CARBIDOPA W/LEVODOPA [Concomitant]
     Indication: PARKINSON^S DISEASE
     Dosage: 25/100
  3. LISINOPRIL [Concomitant]
     Indication: HYPERTENSION
  4. VITAMIN D [Concomitant]
  5. MULTIVITAMIN [Concomitant]
  6. VITAMIN C [Concomitant]

REACTIONS (5)
  - Drug ineffective [Not Recovered/Not Resolved]
  - Feeling abnormal [Unknown]
  - Tremor [Unknown]
  - Gait disturbance [Unknown]
  - Insomnia [Unknown]
